FAERS Safety Report 16521304 (Version 1)
Quarter: 2019Q3

REPORT INFORMATION
  Report Type: Report from Study
  Country: CA (occurrence: CA)
  Receive Date: 20190702
  Receipt Date: 20190702
  Transmission Date: 20191004
  Serious: Yes (Other)
  Sender: FDA-Public Use
  Company Number: CA-JNJFOC-20190627631

PATIENT
  Age: 49 Year
  Sex: Female
  Weight: 72.2 kg

DRUGS (1)
  1. SIMPONI [Suspect]
     Active Substance: GOLIMUMAB
     Indication: COLITIS ULCERATIVE
     Route: 058

REACTIONS (4)
  - Diarrhoea haemorrhagic [Unknown]
  - Alopecia [Unknown]
  - Abdominal pain [Unknown]
  - Influenza [Unknown]

NARRATIVE: CASE EVENT DATE: 201903
